FAERS Safety Report 9938083 (Version 1)
Quarter: 2014Q1

REPORT INFORMATION
  Report Type: Spontaneous
  Country: US (occurrence: US)
  Receive Date: 20140303
  Receipt Date: 20140303
  Transmission Date: 20141002
  Serious: No
  Sender: FDA-Public Use
  Company Number: US-JNJFOC-20140210961

PATIENT
  Age: 59 Year
  Sex: Female

DRUGS (9)
  1. SANDOZ FENTANYL TRANSDERMAL SYSTEM [Suspect]
     Indication: BACK PAIN
     Route: 062
     Dates: start: 201311, end: 201401
  2. SANDOZ FENTANYL TRANSDERMAL SYSTEM [Suspect]
     Indication: BACK PAIN
     Route: 062
     Dates: start: 201401
  3. OXYCODONE [Concomitant]
     Indication: BREAKTHROUGH PAIN
     Dosage: EVERY4-6 HOURS AS NEEDED.
     Route: 048
     Dates: start: 2013
  4. ZANTAC [Concomitant]
     Indication: GASTROOESOPHAGEAL REFLUX DISEASE
     Route: 048
  5. NEXIUM [Concomitant]
     Indication: GASTROOESOPHAGEAL REFLUX DISEASE
     Route: 048
  6. BUSPIRONE [Concomitant]
     Indication: SLEEP DISORDER
     Route: 048
     Dates: start: 2013
  7. BUSPIRONE [Concomitant]
     Indication: NERVOUSNESS
     Route: 048
     Dates: start: 2013
  8. LEVOCETIRIZINE [Concomitant]
     Indication: MULTIPLE ALLERGIES
     Dosage: AS NEEDED
     Route: 048
     Dates: start: 201308
  9. FLUTICASONE [Concomitant]
     Indication: SEASONAL ALLERGY
     Route: 045
     Dates: start: 201306

REACTIONS (3)
  - Skin exfoliation [Not Recovered/Not Resolved]
  - Product quality issue [Not Recovered/Not Resolved]
  - Wrong technique in drug usage process [Not Recovered/Not Resolved]
